FAERS Safety Report 22660964 (Version 1)
Quarter: 2023Q2

REPORT INFORMATION
  Report Type: Spontaneous
  Country: RS (occurrence: RS)
  Receive Date: 20230630
  Receipt Date: 20230630
  Transmission Date: 20230722
  Serious: Yes (Other)
  Sender: FDA-Public Use
  Company Number: RS-SUN PHARMACEUTICAL INDUSTRIES LTD-2023R1-397094

PATIENT
  Age: 55 Year
  Sex: Male

DRUGS (4)
  1. AMLODIPINE [Suspect]
     Active Substance: AMLODIPINE BESYLATE
     Indication: Hypertension
     Dosage: UNK (10 MG)
     Route: 048
  2. ENALAPRIL [Suspect]
     Active Substance: ENALAPRIL
     Indication: Hypertension
     Dosage: UNK (20 MG)
     Route: 048
  3. URAPIDIL [Suspect]
     Active Substance: URAPIDIL
     Indication: Hypertension
     Dosage: UNK (12.5 MG)
     Route: 042
  4. MANNITOL [Concomitant]
     Active Substance: MANNITOL
     Indication: Oedema
     Dosage: UNK (125 ML OF 20%, FOUR TIMES A DAY)
     Route: 042

REACTIONS (2)
  - Hepatitis B [Recovering/Resolving]
  - Cerebral amyloid angiopathy [Recovering/Resolving]
